FAERS Safety Report 7826828-3 (Version None)
Quarter: 2011Q4

REPORT INFORMATION
  Report Type: 
  Country: None (occurrence: None)
  Receive Date: 20111020
  Receipt Date: 20111010
  Transmission Date: 20120403
  Serious: Yes (Death)
  Sender: FDA-Public Use
  Company Number: US-RANBAXY-2011US-49531

PATIENT
  Age: 36 Month
  Sex: Female

DRUGS (2)
  1. IBUPROFEN [Suspect]
     Indication: PRODUCT USED FOR UNKNOWN INDICATION
     Dosage: UNK, UNK
     Route: 048
  2. CHLORPHENIRAMINE/HYDROCODONE [Suspect]
     Indication: PRODUCT USED FOR UNKNOWN INDICATION
     Dosage: UNK, UNK
     Route: 048

REACTIONS (2)
  - MULTIPLE DRUG OVERDOSE ACCIDENTAL [None]
  - MEDICATION ERROR [None]
